FAERS Safety Report 15969358 (Version 1)
Quarter: 2019Q1

REPORT INFORMATION
  Report Type: Spontaneous
  Country: US (occurrence: US)
  Receive Date: 20190215
  Receipt Date: 20190215
  Transmission Date: 20190418
  Serious: Yes (Other)
  Sender: FDA-Public Use
  Company Number: PHEH2019US006776

PATIENT
  Sex: Male

DRUGS (1)
  1. TASIGNA [Suspect]
     Active Substance: NILOTINIB
     Indication: CHRONIC MYELOID LEUKAEMIA
     Dosage: 2 DF, BID
     Route: 048
     Dates: start: 20100915, end: 201502

REACTIONS (7)
  - Inguinal hernia [Unknown]
  - Fluid retention [Unknown]
  - Amnesia [Unknown]
  - Ascites [Unknown]
  - Diarrhoea [Unknown]
  - Chest pain [Unknown]
  - Restless legs syndrome [Unknown]
